FAERS Safety Report 17892539 (Version 1)
Quarter: 2020Q2

REPORT INFORMATION
  Report Type: Spontaneous
  Country: PT (occurrence: PT)
  Receive Date: 20200612
  Receipt Date: 20200612
  Transmission Date: 20200714
  Serious: Yes (Hospitalization)
  Sender: FDA-Public Use
  Company Number: PT-SAMSUNG BIOEPIS-SB-2020-18697

PATIENT
  Age: 58 Year
  Sex: Female

DRUGS (1)
  1. BENEPALI [Suspect]
     Active Substance: ETANERCEPT
     Indication: RHEUMATOID ARTHRITIS
     Dosage: UNKNOWN
     Route: 065
     Dates: start: 20190524, end: 20190622

REACTIONS (4)
  - Herpes zoster oticus [Recovered/Resolved]
  - Facial paralysis [Recovered/Resolved]
  - Ear pain [Recovered/Resolved]
  - Meningitis herpes [Recovered/Resolved]

NARRATIVE: CASE EVENT DATE: 20190524
